FAERS Safety Report 22871618 (Version 4)
Quarter: 2023Q4

REPORT INFORMATION
  Report Type: Report from Study
  Country: IT (occurrence: IT)
  Receive Date: 20230828
  Receipt Date: 20231124
  Transmission Date: 20240110
  Serious: Yes (Hospitalization, Other)
  Sender: FDA-Public Use
  Company Number: IT-002147023-NVSC2023IT167753

PATIENT
  Age: 60 Year
  Sex: Male

DRUGS (1)
  1. COSENTYX [Suspect]
     Active Substance: SECUKINUMAB
     Indication: Product used for unknown indication
     Dosage: 300 MG, QMO
     Route: 065
     Dates: start: 20220415

REACTIONS (7)
  - Gastrointestinal disorder [Unknown]
  - Speech disorder [Unknown]
  - Ill-defined disorder [Unknown]
  - Epilepsy [Unknown]
  - Colitis [Unknown]
  - Malaise [Unknown]
  - Rash macular [Unknown]

NARRATIVE: CASE EVENT DATE: 20230601
